FAERS Safety Report 7817084-0 (Version None)
Quarter: 2011Q4

REPORT INFORMATION
  Report Type: 
  Country: None (occurrence: None)
  Receive Date: 20111017
  Receipt Date: 20111011
  Transmission Date: 20120403
  Serious: Yes (Death, Other)
  Sender: FDA-Public Use
  Company Number: PHEH2009US13622

PATIENT
  Sex: Female
  Weight: 68.027 kg

DRUGS (13)
  1. HUMIRA [Concomitant]
  2. WELLBUTRIN [Concomitant]
  3. FEMARA [Concomitant]
  4. RADIATION [Concomitant]
  5. DECADRON [Concomitant]
  6. RESTORIL [Concomitant]
  7. COMPAZINE [Concomitant]
  8. NEUPOGEN [Concomitant]
  9. ZOMETA [Suspect]
     Dosage: UNK, EVERY 4 WEEKS
     Route: 042
     Dates: start: 20060401, end: 20070601
  10. XANAX [Concomitant]
  11. CHEMOTHERAPEUTICS [Concomitant]
  12. ACYCLOVIR [Concomitant]
  13. COUMADIN [Concomitant]

REACTIONS (33)
  - VULVOVAGINAL MYCOTIC INFECTION [None]
  - DISABILITY [None]
  - ANHEDONIA [None]
  - DYSPHONIA [None]
  - CHILLS [None]
  - LEUKOPENIA [None]
  - FATIGUE [None]
  - DEATH [None]
  - GINGIVAL ABSCESS [None]
  - DYSPHAGIA [None]
  - IMMUNOSUPPRESSION [None]
  - OSTEONECROSIS OF JAW [None]
  - INJURY [None]
  - ANXIETY [None]
  - ASTHENIA [None]
  - INSOMNIA [None]
  - GASTROOESOPHAGEAL REFLUX DISEASE [None]
  - PAIN [None]
  - ORAL DISORDER [None]
  - HERPES SIMPLEX [None]
  - VOCAL CORD POLYP [None]
  - HAEMORRHOIDAL HAEMORRHAGE [None]
  - BONE LOSS [None]
  - INFECTION [None]
  - AGRANULOCYTOSIS [None]
  - NEUTROPENIA [None]
  - BACK PAIN [None]
  - ABDOMINAL DISCOMFORT [None]
  - PAIN IN JAW [None]
  - PYREXIA [None]
  - DYSPEPSIA [None]
  - MYALGIA [None]
  - NASAL CONGESTION [None]
